FAERS Safety Report 17382219 (Version 1)
Quarter: 2020Q1

REPORT INFORMATION
  Report Type: Report from Study
  Country: US (occurrence: US)
  Receive Date: 20200206
  Receipt Date: 20200206
  Transmission Date: 20200409
  Serious: Yes (Other)
  Sender: FDA-Public Use
  Company Number: US-PFIZER INC-2020047139

PATIENT
  Age: 72 Year
  Sex: Female
  Weight: 110.2 kg

DRUGS (8)
  1. KORLYM [Suspect]
     Active Substance: MIFEPRISTONE
     Dosage: UNK
  2. MECLIZINE [Concomitant]
     Active Substance: MECLIZINE HYDROCHLORIDE
     Dosage: UNK
  3. WARFARIN [Concomitant]
     Active Substance: WARFARIN
     Dosage: UNK
  4. LEVOTHYROXINE SODIUM. [Concomitant]
     Active Substance: LEVOTHYROXINE SODIUM
     Dosage: UNK
  5. COUMADIN [Concomitant]
     Active Substance: WARFARIN SODIUM
     Dosage: UNK
  6. KORLYM [Suspect]
     Active Substance: MIFEPRISTONE
     Indication: CUSHING^S SYNDROME
     Dosage: 300 MG, 1X/DAY
     Route: 048
     Dates: start: 20190606
  7. SPIRONOLACTONE. [Suspect]
     Active Substance: SPIRONOLACTONE
     Dosage: UNK
     Dates: end: 2019
  8. FERROUS SULFATE. [Concomitant]
     Active Substance: FERROUS SULFATE
     Dosage: UNK

REACTIONS (16)
  - Joint swelling [Recovered/Resolved]
  - Loss of consciousness [Unknown]
  - Dizziness [Unknown]
  - Feeling abnormal [Unknown]
  - Eye pain [Unknown]
  - Somnolence [Not Recovered/Not Resolved]
  - Urticaria [Recovering/Resolving]
  - International normalised ratio increased [Recovered/Resolved]
  - Asthenia [Not Recovered/Not Resolved]
  - Sensitivity to weather change [Unknown]
  - Blood glucose increased [Unknown]
  - Dizziness postural [Unknown]
  - Fatigue [Unknown]
  - Myalgia [Unknown]
  - Rash [Recovered/Resolved]
  - Blood potassium decreased [Unknown]

NARRATIVE: CASE EVENT DATE: 2019
